FAERS Safety Report 15793960 (Version 1)
Quarter: 2019Q1

REPORT INFORMATION
  Report Type: Spontaneous
  Country: US (occurrence: US)
  Receive Date: 20190105
  Receipt Date: 20190105
  Transmission Date: 20190417
  Serious: Yes (Disabling)
  Sender: FDA-Public Use
  Company Number: None

PATIENT
  Age: 61 Year
  Sex: Male
  Weight: 74.25 kg

DRUGS (10)
  1. HYDROCODONE ACETAMINOPHEN 5/325 MG [Suspect]
     Active Substance: ACETAMINOPHEN\HYDROCODONE BITARTRATE
     Indication: INFUSION
     Dosage: ?          QUANTITY:90 TABLET(S);?
     Route: 048
     Dates: start: 20181029
  2. VITAMIN C [Concomitant]
     Active Substance: ASCORBIC ACID
  3. MULTIBLE B [Concomitant]
  4. GLUCOSAMIN [Concomitant]
     Active Substance: GLUCOSAMINE
  5. TRIPLE OMEGA [Concomitant]
  6. DICLOFENAC [Concomitant]
     Active Substance: DICLOFENAC
  7. ACETAMINOPHEN. [Concomitant]
     Active Substance: ACETAMINOPHEN
  8. LIDOCAINE. [Concomitant]
     Active Substance: LIDOCAINE
  9. HYDROCODONE [Concomitant]
     Active Substance: HYDROCODONE
  10. VALIUM [Concomitant]
     Active Substance: DIAZEPAM

REACTIONS (5)
  - Fatigue [None]
  - Headache [None]
  - Depression [None]
  - Inadequate analgesia [None]
  - Product complaint [None]

NARRATIVE: CASE EVENT DATE: 20181029
